FAERS Safety Report 15631448 (Version 2)
Quarter: 2018Q4

REPORT INFORMATION
  Report Type: Report from Study
  Country: None (occurrence: US)
  Receive Date: 20181119
  Receipt Date: 20181221
  Transmission Date: 20190205
  Serious: Yes (Hospitalization)
  Sender: FDA-Public Use
  Company Number: US-ABBVIE-18K-163-2555005-00

PATIENT
  Sex: Female

DRUGS (1)
  1. HUMIRA [Suspect]
     Active Substance: ADALIMUMAB
     Indication: PSORIASIS
     Route: 058

REACTIONS (7)
  - Injection site pain [Not Recovered/Not Resolved]
  - Aortic aneurysm [Unknown]
  - Oxygen saturation decreased [Unknown]
  - Renal function test abnormal [Recovering/Resolving]
  - Sensitivity to weather change [Not Recovered/Not Resolved]
  - Thrombosis [Unknown]
  - Arthralgia [Not Recovered/Not Resolved]
